FAERS Safety Report 17861515 (Version 5)
Quarter: 2020Q3

REPORT INFORMATION
  Report Type: Spontaneous
  Country: JP (occurrence: JP)
  Receive Date: 20200604
  Receipt Date: 20200702
  Transmission Date: 20201103
  Serious: Yes (Hospitalization)
  Sender: FDA-Public Use
  Company Number: JP-PFIZER INC-2020216765

PATIENT
  Age: 78 Year
  Sex: Male

DRUGS (2)
  1. BAVENCIO [Suspect]
     Active Substance: AVELUMAB
     Indication: RENAL CELL CARCINOMA
     Dosage: 575 MG, DAILY
     Route: 041
     Dates: start: 20200424
  2. INLYTA [Suspect]
     Active Substance: AXITINIB
     Indication: RENAL CELL CARCINOMA
     Dosage: 5 MG, 2X/DAY
     Route: 048
     Dates: start: 20200424, end: 20200527

REACTIONS (23)
  - Protein total decreased [Unknown]
  - Blood lactate dehydrogenase increased [Recovered/Resolved]
  - Blood thyroid stimulating hormone increased [Unknown]
  - Hepatic fibrosis marker increased [Recovered/Resolved]
  - Blood calcium decreased [Unknown]
  - High density lipoprotein decreased [Unknown]
  - Dyspnoea [Recovering/Resolving]
  - Blood urea increased [Unknown]
  - C-reactive protein increased [Unknown]
  - Blood glucose increased [Unknown]
  - Haemoglobin decreased [Unknown]
  - Haematocrit decreased [Unknown]
  - Blood albumin decreased [Unknown]
  - Blood uric acid increased [Unknown]
  - Blood creatine phosphokinase decreased [Unknown]
  - N-terminal prohormone brain natriuretic peptide increased [Unknown]
  - Weight increased [Unknown]
  - Blood bilirubin increased [Unknown]
  - Pleural effusion [Recovering/Resolving]
  - Platelet count decreased [Recovered/Resolved]
  - Red blood cell count decreased [Unknown]
  - Blood creatinine increased [Unknown]
  - Blood potassium decreased [Recovered/Resolved]

NARRATIVE: CASE EVENT DATE: 20200513
